FAERS Safety Report 10230402 (Version 1)
Quarter: 2014Q2

REPORT INFORMATION
  Report Type: Spontaneous
  Country: US (occurrence: None)
  Receive Date: 20140610
  Receipt Date: 20140610
  Transmission Date: 20141212
  Serious: No
  Sender: FDA-Public Use
  Company Number: None

PATIENT
  Age: 43 Year
  Sex: Female
  Weight: 99.79 kg

DRUGS (1)
  1. LEVOTHYROXINE 100 MCG [Suspect]
     Indication: HYPOTHYROIDISM
     Dosage: LEVOTHYROXINE TAKEN BY MOUTH
     Route: 048

REACTIONS (6)
  - Product tampering [None]
  - Product physical consistency issue [None]
  - Pain in extremity [None]
  - Back pain [None]
  - Feeling abnormal [None]
  - Influenza [None]
